FAERS Safety Report 4746756-X (Version None)
Quarter: 2005Q3

REPORT INFORMATION
  Report Type: 
  Country: None (occurrence: None)
  Receive Date: 20050817
  Receipt Date: 20050812
  Transmission Date: 20060218
  Serious: Yes (Death, Other)
  Sender: FDA-Public Use
  Company Number: PHBS2005JP11819

PATIENT
  Age: 59 Year
  Sex: Male

DRUGS (2)
  1. TEGRETOL [Suspect]
     Indication: FACIAL SPASM
     Route: 048
     Dates: start: 20050719, end: 20050731
  2. NIVADIL [Suspect]
     Route: 048

REACTIONS (3)
  - DIARRHOEA [None]
  - MULTI-ORGAN FAILURE [None]
  - PLATELET COUNT DECREASED [None]
